FAERS Safety Report 5722911-7 (Version None)
Quarter: 2008Q2

REPORT INFORMATION
  Report Type: 
  Country: None (occurrence: None)
  Receive Date: 20080425
  Receipt Date: 20080411
  Transmission Date: 20081010
  Serious: Yes (Hospitalization)
  Sender: FDA-Public Use
  Company Number: S08-FRA-01494-01

PATIENT
  Age: 87 Year
  Sex: Female

DRUGS (4)
  1. MEMANTINE HCL [Suspect]
     Indication: DEMENTIA ALZHEIMER'S TYPE
     Dates: start: 20071101, end: 20080107
  2. OMEPRAZOLE [Concomitant]
  3. COZAAR [Concomitant]
  4. SERTRALINE [Concomitant]

REACTIONS (10)
  - ABNORMAL BEHAVIOUR [None]
  - BUNDLE BRANCH BLOCK LEFT [None]
  - COGNITIVE DISORDER [None]
  - CONDITION AGGRAVATED [None]
  - DISORIENTATION [None]
  - ECCHYMOSIS [None]
  - FALL [None]
  - HAEMOGLOBIN DECREASED [None]
  - MICTURITION DISORDER [None]
  - SOMNOLENCE [None]
